FAERS Safety Report 24704187 (Version 1)
Quarter: 2024Q4

REPORT INFORMATION
  Report Type: Spontaneous
  Country: BE (occurrence: BE)
  Receive Date: 20241206
  Receipt Date: 20241206
  Transmission Date: 20250115
  Serious: Yes (Other)
  Sender: ALEXION PHARMACEUTICALS
  Company Number: BE-ROCHE-3515206

PATIENT
  Age: 63 Year
  Weight: 72.2 kg

DRUGS (46)
  1. FULVESTRANT [Suspect]
     Active Substance: FULVESTRANT
     Indication: Breast cancer metastatic
     Dosage: ON 25/JAN/2024, AT 1:09 PM SHE RECEIVED MOST RECENT DOSE OF FULVESTRANT, 500 MG,PRIOR TO AE
  2. FULVESTRANT [Suspect]
     Active Substance: FULVESTRANT
     Dosage: ON 25/JAN/2024, AT 1:09 PM SHE RECEIVED MOST RECENT DOSE OF FULVESTRANT, 500 MG,PRIOR TO AE
  3. FULVESTRANT [Suspect]
     Active Substance: FULVESTRANT
     Dosage: ON 25/JAN/2024, AT 1:09 PM SHE RECEIVED MOST RECENT DOSE OF FULVESTRANT, 500 MG,PRIOR TO AE
  4. FULVESTRANT [Suspect]
     Active Substance: FULVESTRANT
     Dosage: ON 25/JAN/2024, AT 1:09 PM SHE RECEIVED MOST RECENT DOSE OF FULVESTRANT, 500 MG,PRIOR TO AE
  5. INAVOLISIB [Suspect]
     Active Substance: INAVOLISIB
     Indication: Breast cancer metastatic
     Dosage: ON 07/FEB/2024, AT 9:15 AM SHE RECEIVED MOST RECENT DOSE INVOLISIB, 9 MG PRIOR TO AE
  6. INAVOLISIB [Suspect]
     Active Substance: INAVOLISIB
     Dosage: ON 07/FEB/2024, AT 9:15 AM SHE RECEIVED MOST RECENT DOSE INVOLISIB, 9 MG PRIOR TO AE
  7. INAVOLISIB [Suspect]
     Active Substance: INAVOLISIB
     Dosage: ON 07/FEB/2024, AT 9:15 AM SHE RECEIVED MOST RECENT DOSE INVOLISIB, 9 MG PRIOR TO AE
  8. INAVOLISIB [Suspect]
     Active Substance: INAVOLISIB
     Dosage: ON 07/FEB/2024, AT 9:15 AM SHE RECEIVED MOST RECENT DOSE INVOLISIB, 9 MG PRIOR TO AE
  9. MONTELUKAST [Concomitant]
     Active Substance: MONTELUKAST
     Indication: Asthma
     Dosage: 10 MILLIGRAM, QD
  10. MONTELUKAST [Concomitant]
     Active Substance: MONTELUKAST
     Dosage: 10 MILLIGRAM, QD
  11. MONTELUKAST [Concomitant]
     Active Substance: MONTELUKAST
     Dosage: 10 MILLIGRAM, QD
  12. MONTELUKAST [Concomitant]
     Active Substance: MONTELUKAST
     Dosage: 10 MILLIGRAM, QD
  13. NEBIVOLOL [Concomitant]
     Active Substance: NEBIVOLOL
     Indication: Hypertension
     Dosage: 5 MILLIGRAM, QD
  14. NEBIVOLOL [Concomitant]
     Active Substance: NEBIVOLOL
     Dosage: 5 MILLIGRAM, QD
  15. NEBIVOLOL [Concomitant]
     Active Substance: NEBIVOLOL
     Dosage: 5 MILLIGRAM, QD
  16. NEBIVOLOL [Concomitant]
     Active Substance: NEBIVOLOL
     Dosage: 5 MILLIGRAM, QD
  17. SYMBICORT [Concomitant]
     Active Substance: BUDESONIDE\FORMOTEROL FUMARATE DIHYDRATE
     Indication: Asthma
     Dosage: UNK
  18. SYMBICORT [Concomitant]
     Active Substance: BUDESONIDE\FORMOTEROL FUMARATE DIHYDRATE
     Dosage: UNK
  19. SYMBICORT [Concomitant]
     Active Substance: BUDESONIDE\FORMOTEROL FUMARATE DIHYDRATE
     Dosage: UNK
  20. SYMBICORT [Concomitant]
     Active Substance: BUDESONIDE\FORMOTEROL FUMARATE DIHYDRATE
     Dosage: UNK
  21. AMLODIPINE BESYLATE\INDAPAMIDE\PERINDOPRIL ARGININE [Concomitant]
     Active Substance: AMLODIPINE BESYLATE\INDAPAMIDE\PERINDOPRIL ARGININE
     Indication: Hypertension
     Dosage: OSE 1 TABLET
  22. AMLODIPINE BESYLATE\INDAPAMIDE\PERINDOPRIL ARGININE [Concomitant]
     Active Substance: AMLODIPINE BESYLATE\INDAPAMIDE\PERINDOPRIL ARGININE
     Dosage: OSE 1 TABLET
  23. AMLODIPINE BESYLATE\INDAPAMIDE\PERINDOPRIL ARGININE [Concomitant]
     Active Substance: AMLODIPINE BESYLATE\INDAPAMIDE\PERINDOPRIL ARGININE
     Dosage: OSE 1 TABLET
  24. AMLODIPINE BESYLATE\INDAPAMIDE\PERINDOPRIL ARGININE [Concomitant]
     Active Substance: AMLODIPINE BESYLATE\INDAPAMIDE\PERINDOPRIL ARGININE
     Dosage: OSE 1 TABLET
  25. DENOSUMAB [Concomitant]
     Active Substance: DENOSUMAB
     Dosage: 120 MILLIGRAM, QMONTH
  26. DENOSUMAB [Concomitant]
     Active Substance: DENOSUMAB
     Dosage: 120 MILLIGRAM, QMONTH
  27. DENOSUMAB [Concomitant]
     Active Substance: DENOSUMAB
     Dosage: 120 MILLIGRAM, QMONTH
  28. DENOSUMAB [Concomitant]
     Active Substance: DENOSUMAB
     Dosage: 120 MILLIGRAM, QMONTH
  29. CALCIUM CARBONATE\CHOLECALCIFEROL [Concomitant]
     Active Substance: CALCIUM CARBONATE\CHOLECALCIFEROL
     Dosage: UNK
  30. CALCIUM CARBONATE\CHOLECALCIFEROL [Concomitant]
     Active Substance: CALCIUM CARBONATE\CHOLECALCIFEROL
     Dosage: UNK
  31. CALCIUM CARBONATE\CHOLECALCIFEROL [Concomitant]
     Active Substance: CALCIUM CARBONATE\CHOLECALCIFEROL
     Dosage: UNK
  32. CALCIUM CARBONATE\CHOLECALCIFEROL [Concomitant]
     Active Substance: CALCIUM CARBONATE\CHOLECALCIFEROL
     Dosage: UNK
  33. MAGNESIUM [Concomitant]
     Active Substance: MAGNESIUM
     Indication: Muscle spasms
     Dosage: UNK
  34. MAGNESIUM [Concomitant]
     Active Substance: MAGNESIUM
     Dosage: UNK
  35. MAGNESIUM [Concomitant]
     Active Substance: MAGNESIUM
     Dosage: UNK
  36. MAGNESIUM [Concomitant]
     Active Substance: MAGNESIUM
     Dosage: UNK
  37. UREUM [Concomitant]
     Indication: Dry skin
     Dosage: UNK
  38. UREUM [Concomitant]
     Dosage: UNK
  39. UREUM [Concomitant]
     Dosage: UNK
  40. UREUM [Concomitant]
     Dosage: UNK
  41. PACLITAXEL [Concomitant]
     Active Substance: PACLITAXEL
     Dosage: 144.42 MILLIGRAM
  42. PACLITAXEL [Concomitant]
     Active Substance: PACLITAXEL
     Dosage: 144.42 MILLIGRAM
  43. DOXORUBICIN [Concomitant]
     Active Substance: DOXORUBICIN
     Dosage: 45.39 MILLIGRAM
     Route: 065
  44. DOXORUBICIN [Concomitant]
     Active Substance: DOXORUBICIN
     Dosage: 45.39 MILLIGRAM
  45. DOXORUBICIN [Concomitant]
     Active Substance: DOXORUBICIN
     Dosage: 45.39 MILLIGRAM
     Route: 065
  46. DOXORUBICIN [Concomitant]
     Active Substance: DOXORUBICIN
     Dosage: 45.39 MILLIGRAM

REACTIONS (1)
  - Hepatotoxicity [Not Recovered/Not Resolved]
